FAERS Safety Report 5128039-1 (Version None)
Quarter: 2006Q4

REPORT INFORMATION
  Report Type: 
  Country: None (occurrence: None)
  Receive Date: 20061013
  Receipt Date: 20061013
  Transmission Date: 20070319
  Serious: Yes (Other)
  Sender: FDA-Public Use
  Company Number: None

PATIENT
  Sex: Female
  Weight: 45.3597 kg

DRUGS (3)
  1. PAXIL [Suspect]
     Indication: ADOLESCENCE
     Dates: start: 20030301, end: 20061001
  2. PAXIL [Suspect]
     Indication: DEPRESSION
     Dates: start: 20030301, end: 20061001
  3. KLONOPIN [Concomitant]

REACTIONS (22)
  - DECREASED APPETITE [None]
  - DRUG DEPENDENCE [None]
  - DYSARTHRIA [None]
  - FLAT AFFECT [None]
  - GAIT DISTURBANCE [None]
  - HEAD DISCOMFORT [None]
  - INSOMNIA [None]
  - LETHARGY [None]
  - MENTAL DISORDER [None]
  - MOVEMENT DISORDER [None]
  - MUSCLE SPASMS [None]
  - MUSCLE TWITCHING [None]
  - NERVOUSNESS [None]
  - ORAL INTAKE REDUCED [None]
  - PAIN [None]
  - PANIC ATTACK [None]
  - SOCIAL PHOBIA [None]
  - SOCIAL PROBLEM [None]
  - SPEECH DISORDER [None]
  - SUICIDAL IDEATION [None]
  - TINNITUS [None]
  - TREMOR [None]
